FAERS Safety Report 8188662-7 (Version None)
Quarter: 2012Q1

REPORT INFORMATION
  Report Type: 
  Country: None (occurrence: None)
  Receive Date: 20120306
  Receipt Date: 20120214
  Transmission Date: 20120608
  Serious: Yes (Other)
  Sender: FDA-Public Use
  Company Number: BR-SHIRE-SPV1-2012-00166

PATIENT
  Age: 13 Year
  Sex: Male

DRUGS (1)
  1. LISDEXAMFETAMINE DIMESYLATE [Suspect]
     Indication: ATTENTION DEFICIT/HYPERACTIVITY DISORDER
     Dosage: 30 MG, 1X/DAY:QD
     Route: 048
     Dates: end: 20120203

REACTIONS (5)
  - HYPOTONIA [None]
  - HYPERTENSIVE CRISIS [None]
  - HYPERHIDROSIS [None]
  - OFF LABEL USE [None]
  - HEADACHE [None]
